FAERS Safety Report 23301931 (Version 1)
Quarter: 2023Q4

REPORT INFORMATION
  Report Type: Report from Study
  Country: CN (occurrence: CN)
  Receive Date: 20231215
  Receipt Date: 20231215
  Transmission Date: 20240110
  Serious: Yes (Hospitalization)
  Sender: FDA-Public Use
  Company Number: CN-Eisai-EC-2023-154759

PATIENT
  Age: 70 Year
  Sex: Male
  Weight: 63 kg

DRUGS (6)
  1. LENVATINIB [Suspect]
     Active Substance: LENVATINIB
     Indication: Hepatocellular carcinoma
     Route: 048
     Dates: start: 20211103, end: 20220126
  2. TORIPALIMAB [Suspect]
     Active Substance: TORIPALIMAB
     Indication: Hepatocellular carcinoma
     Dosage: 240MG/PLACEBO
     Route: 048
     Dates: start: 20211103, end: 20220126
  3. TENOVIR [Concomitant]
     Route: 048
     Dates: start: 20211103
  4. INSULIN ASPART [Concomitant]
     Active Substance: INSULIN ASPART
  5. IRBESARTAN [Concomitant]
     Active Substance: IRBESARTAN
     Route: 048
  6. AMLODIPINE BESYLATE [Concomitant]
     Active Substance: AMLODIPINE BESYLATE
     Route: 048

REACTIONS (1)
  - Hepatic encephalopathy [Recovered/Resolved]

NARRATIVE: CASE EVENT DATE: 20220126
